FAERS Safety Report 11790452 (Version 2)
Quarter: 2016Q1

REPORT INFORMATION
  Report Type: Spontaneous
  Country: US (occurrence: US)
  Receive Date: 20151201
  Receipt Date: 20160325
  Transmission Date: 20160525
  Serious: Yes (Other)
  Sender: FDA-Public Use
  Company Number: US-BAYER-2015-478465

PATIENT
  Age: 25 Year
  Sex: Female

DRUGS (1)
  1. MIRENA [Suspect]
     Active Substance: LEVONORGESTREL
     Dosage: 20 MCG/24HR, CONT
     Route: 015
     Dates: start: 20050621, end: 20130320

REACTIONS (8)
  - Papilloedema [None]
  - Visual impairment [None]
  - Product use issue [None]
  - Headache [None]
  - Vision blurred [None]
  - Blindness [None]
  - Benign intracranial hypertension [None]
  - Photophobia [None]

NARRATIVE: CASE EVENT DATE: 20090419
